FAERS Safety Report 9925692 (Version 1)
Quarter: 2014Q1

REPORT INFORMATION
  Report Type: Spontaneous
  Country: GB (occurrence: GB)
  Receive Date: 20140226
  Receipt Date: 20140226
  Transmission Date: 20141002
  Serious: Yes (Hospitalization)
  Sender: FDA-Public Use
  Company Number: GB-GLAXOSMITHKLINE-B0969866A

PATIENT
  Age: 5 Month
  Sex: Female

DRUGS (2)
  1. RANITIDINE [Suspect]
     Indication: PRODUCT USED FOR UNKNOWN INDICATION
     Dosage: 1ML THREE TIMES PER DAY
  2. CETIRIZINE [Suspect]
     Indication: PRODUCT USED FOR UNKNOWN INDICATION
     Route: 065
     Dates: start: 20120417, end: 20120422

REACTIONS (5)
  - Gastric ulcer [Recovered/Resolved with Sequelae]
  - Crying [Recovered/Resolved]
  - Drug dispensing error [Recovered/Resolved with Sequelae]
  - Screaming [Recovered/Resolved]
  - Decreased appetite [Recovering/Resolving]
